FAERS Safety Report 7736828-X (Version None)
Quarter: 2011Q3

REPORT INFORMATION
  Report Type: 
  Country: None (occurrence: None)
  Receive Date: 20110908
  Receipt Date: 20110908
  Transmission Date: 20111222
  Serious: Yes (Other)
  Sender: FDA-Public Use
  Company Number: None

PATIENT
  Age: 44 Year
  Sex: Male
  Weight: 106.59 kg

DRUGS (2)
  1. RANITIDINE [Suspect]
     Indication: ABDOMINAL DISCOMFORT
     Dosage: ONE TABLET
     Route: 048
     Dates: start: 20110904, end: 20110906
  2. RANITIDINE [Suspect]
     Indication: DYSPEPSIA
     Dosage: ONE TABLET
     Route: 048
     Dates: start: 20110904, end: 20110906

REACTIONS (4)
  - ABDOMINAL DISCOMFORT [None]
  - PRODUCT ODOUR ABNORMAL [None]
  - DIARRHOEA [None]
  - NAUSEA [None]
